FAERS Safety Report 8336997-7 (Version None)
Quarter: 2012Q2

REPORT INFORMATION
  Report Type: 
  Country: None (occurrence: None)
  Receive Date: 20120504
  Receipt Date: 20120423
  Transmission Date: 20120825
  Serious: Yes (Other)
  Sender: FDA-Public Use
  Company Number: IE-MEDIMMUNE-MEDI-0015253

PATIENT
  Sex: Female

DRUGS (12)
  1. SYNAGIS [Suspect]
     Route: 030
     Dates: start: 20110901, end: 20111004
  2. CHLOROTHIAZIDE [Concomitant]
  3. ERGOCALCIFEROL [Concomitant]
  4. HYDROCHLOROTHIAZIDE [Concomitant]
  5. IBUPROFEN [Suspect]
  6. OXYGEN [Concomitant]
  7. ALFACALCIDOL [Concomitant]
  8. FERROUS SULFATE TAB [Concomitant]
  9. KAPSOVIT [Concomitant]
  10. SPIRONOLACTONE [Concomitant]
  11. NUTRIPREM [Concomitant]
  12. FUROSEMIDE [Concomitant]

REACTIONS (3)
  - LOWER RESPIRATORY TRACT INFECTION [None]
  - COUGH [None]
  - PYREXIA [None]
